FAERS Safety Report 9678370 (Version 1)
Quarter: 2013Q4

REPORT INFORMATION
  Report Type: Spontaneous
  Country: US (occurrence: US)
  Receive Date: 20131108
  Receipt Date: 20131108
  Transmission Date: 20140711
  Serious: No
  Sender: FDA-Public Use
  Company Number: US-UPSHER-SMITH LABORATORIES, INC.-13002688

PATIENT
  Age: 77 Year
  Sex: Male

DRUGS (9)
  1. JANTOVEN [Suspect]
     Indication: IMPLANTABLE DEFIBRILLATOR INSERTION
     Dosage: 5 MG, QD ON M-F
     Route: 048
     Dates: start: 201301
  2. JANTOVEN [Suspect]
     Dosage: 7.5 MG, QD ON SA, SU
     Route: 048
     Dates: start: 201301
  3. PLAVIX                             /01220701/ [Concomitant]
     Dosage: UNK
  4. LIPITOR [Concomitant]
     Dosage: UNK
  5. COREG [Concomitant]
     Dosage: UNK
  6. LISINOPRIL [Concomitant]
     Dosage: UNK
  7. AMBIEN [Concomitant]
     Dosage: UNK
  8. NITROGLYCERIN [Concomitant]
     Dosage: UNK, PRN
  9. ASPIRIN [Concomitant]
     Dosage: UNK

REACTIONS (1)
  - Local swelling [Not Recovered/Not Resolved]
